FAERS Safety Report 16877058 (Version 1)
Quarter: 2019Q4

REPORT INFORMATION
  Report Type: Other
  Country: IE (occurrence: IE)
  Receive Date: 20191002
  Receipt Date: 20191002
  Transmission Date: 20200122
  Serious: Yes (Other)
  Sender: FDA-Public Use
  Company Number: IE-OSMOTICA_PHARMACEUTICAL_US_LLC-POI0573201900392

PATIENT
  Age: 51 Year
  Sex: Female

DRUGS (4)
  1. TINZAPARIN [Concomitant]
     Active Substance: TINZAPARIN
     Indication: PRODUCT USED FOR UNKNOWN INDICATION
     Dates: start: 2018, end: 2018
  2. PROGESTERONE. [Concomitant]
     Active Substance: PROGESTERONE
     Indication: HORMONE THERAPY
     Route: 067
     Dates: start: 2018, end: 2018
  3. ASPRIN [Concomitant]
     Active Substance: ASPIRIN
     Indication: PRODUCT USED FOR UNKNOWN INDICATION
     Dates: start: 2018, end: 2018
  4. DIVIGEL [Suspect]
     Active Substance: ESTRADIOL
     Indication: HORMONE THERAPY
     Route: 062
     Dates: start: 2018, end: 2018

REACTIONS (2)
  - Erythema nodosum [Recovering/Resolving]
  - Abortion spontaneous [Recovered/Resolved]

NARRATIVE: CASE EVENT DATE: 201809
